FAERS Safety Report 4355096-2 (Version None)
Quarter: 2004Q2

REPORT INFORMATION
  Report Type: 
  Country: None (occurrence: None)
  Receive Date: 20040504
  Receipt Date: 20040426
  Transmission Date: 20050107
  Serious: No
  Sender: FDA-Public Use
  Company Number: TAP2004Q00506

PATIENT
  Sex: Female

DRUGS (7)
  1. PREVACID [Suspect]
     Indication: GASTROOESOPHAGEAL REFLUX DISEASE
     Dosage: 30 MG, 1 IN 1 D, PER ORAL
     Route: 048
     Dates: start: 20040417, end: 20040426
  2. NORVASC [Concomitant]
  3. KCL (POTASSIUM CHLORIDE) [Concomitant]
  4. CARDIZEM [Concomitant]
  5. LANOXIN [Concomitant]
  6. FUROSEMIDE [Concomitant]
  7. OCUVITE (OCUVITE) [Concomitant]

REACTIONS (3)
  - ABDOMINAL PAIN [None]
  - NAUSEA [None]
  - PHOTOSENSITIVITY REACTION [None]
